FAERS Safety Report 17968505 (Version 4)
Quarter: 2020Q4

REPORT INFORMATION
  Report Type: Spontaneous
  Country: JP (occurrence: JP)
  Receive Date: 20200701
  Receipt Date: 20201231
  Transmission Date: 20210113
  Serious: Yes (Death, Other)
  Sender: FDA-Public Use
  Company Number: JP-ROCHE-2634673

PATIENT
  Age: 78 Year
  Sex: Female
  Weight: 48 kg

DRUGS (6)
  1. MIRCERA [Concomitant]
     Active Substance: METHOXY POLYETHYLENE GLYCOL-EPOETIN BETA
     Dosage: DOSAGE IS UNCERTAIN.
     Dates: end: 202004
  2. FASTIC [Concomitant]
     Active Substance: NATEGLINIDE
     Dosage: DOSAGE IS UNCERTAIN.
     Route: 065
     Dates: end: 20200625
  3. AMLODIN [Concomitant]
     Active Substance: AMLODIPINE BESYLATE
     Dosage: DOSAGE IS UNCERTAIN.
     Route: 065
     Dates: end: 20200625
  4. TECENTRIQ [Suspect]
     Active Substance: ATEZOLIZUMAB
     Indication: TRIPLE NEGATIVE BREAST CANCER
     Route: 041
     Dates: start: 20200610, end: 20200610
  5. OLMESARTAN [Concomitant]
     Active Substance: OLMESARTAN
     Dosage: DOSAGE IS UNCERTAIN.
     Route: 065
     Dates: end: 20200625
  6. ABRAXANE [Concomitant]
     Active Substance: PACLITAXEL
     Indication: TRIPLE NEGATIVE BREAST CANCER
     Dosage: DOSAGE IS UNCERTAIN.
     Route: 041
     Dates: start: 20200610, end: 20200617

REACTIONS (3)
  - Haemophagocytic lymphohistiocytosis [Fatal]
  - Hepatic function abnormal [Fatal]
  - Renal failure [Unknown]

NARRATIVE: CASE EVENT DATE: 20200625
